FAERS Safety Report 8805040 (Version 3)
Quarter: 2015Q1

REPORT INFORMATION
  Report Type: Report from Study
  Country: US (occurrence: US)
  Receive Date: 20120924
  Receipt Date: 20150331
  Transmission Date: 20150721
  Serious: Yes (Death)
  Sender: FDA-Public Use
  Company Number: US-ROCHE-1126485

PATIENT
  Sex: Female

DRUGS (13)
  1. PROCRIT [Concomitant]
     Active Substance: ERYTHROPOIETIN
  2. ZOFRAN [Concomitant]
     Active Substance: ONDANSETRON HYDROCHLORIDE
     Route: 065
  3. 5-FLUOROURACIL [Concomitant]
     Active Substance: FLUOROURACIL
     Route: 042
  4. AVASTIN [Suspect]
     Active Substance: BEVACIZUMAB
     Indication: HEPATIC CANCER
     Route: 042
     Dates: start: 200805
  5. AVASTIN [Suspect]
     Active Substance: BEVACIZUMAB
     Route: 042
  6. TYLENOL [Concomitant]
     Active Substance: ACETAMINOPHEN
     Route: 048
  7. DECADRON [Concomitant]
     Active Substance: DEXAMETHASONE
     Route: 065
  8. LOPRESSOR [Concomitant]
     Active Substance: METOPROLOL TARTRATE
  9. ATIVAN [Concomitant]
     Active Substance: LORAZEPAM
     Route: 048
  10. ATROPINE [Concomitant]
     Active Substance: ATROPINE
     Route: 065
  11. AVASTIN [Suspect]
     Active Substance: BEVACIZUMAB
     Indication: COLON CANCER
     Route: 042
     Dates: start: 20080612
  12. CAMPTOSAR [Concomitant]
     Active Substance: IRINOTECAN HYDROCHLORIDE
     Route: 065
  13. LEUCOVORIN [Concomitant]
     Active Substance: LEUCOVORIN
     Route: 065

REACTIONS (4)
  - Weight decreased [Unknown]
  - Disease progression [Fatal]
  - Off label use [Unknown]
  - Protein urine [Unknown]
